FAERS Safety Report 22330729 (Version 2)
Quarter: 2023Q2

REPORT INFORMATION
  Report Type: Report from Study
  Country: US (occurrence: None)
  Receive Date: 20230517
  Receipt Date: 20230608
  Transmission Date: 20230721
  Serious: Yes (Life-Threatening, Hospitalization, Other)
  Sender: FDA-Public Use
  Company Number: US-Merck Healthcare KGaA-9402581

PATIENT
  Age: 24 Year
  Sex: Male

DRUGS (1)
  1. REBIF [Suspect]
     Active Substance: INTERFERON BETA-1A
     Indication: Multiple sclerosis
     Dosage: REBIF PREFILLED SYRINGE 22MCG/.5ML
     Route: 058
     Dates: start: 20230419, end: 20230504

REACTIONS (3)
  - Adverse drug reaction [Unknown]
  - Suicide attempt [Unknown]
  - Pain [Unknown]

NARRATIVE: CASE EVENT DATE: 20230505
